FAERS Safety Report 15340318 (Version 3)
Quarter: 2018Q4

REPORT INFORMATION
  Report Type: Spontaneous
  Country: GB (occurrence: FR)
  Receive Date: 20180831
  Receipt Date: 20181213
  Transmission Date: 20190204
  Serious: Yes (Hospitalization)
  Sender: FDA-Public Use
  Company Number: FR-FRESENIUS KABI-FK201809125

PATIENT
  Sex: Female

DRUGS (27)
  1. SMOFLIPID [Suspect]
     Active Substance: FISH OIL\MEDIUM-CHAIN TRIGLYCERIDES\OLIVE OIL\SOYBEAN OIL
     Dosage: 150 ML PER BAG, FORMULA JACISA029 (WITHOUT VITAMIN K1)
     Route: 065
     Dates: start: 201610
  2. PHYTOMENADIONE [Suspect]
     Active Substance: PHYTONADIONE
     Indication: PARENTERAL NUTRITION
     Dosage: 1 ML PER BAG, FORMULA JACISA029 (WITH VITAMIN K1)
     Route: 065
     Dates: start: 201610
  3. AMINO ACIDS NOS [Suspect]
     Active Substance: AMINO ACIDS
     Indication: PARENTERAL NUTRITION
     Dosage: 560 ML PER BAG, FORMULA JACISA029K (WITH VITAMIN K1)
     Route: 065
     Dates: start: 201610
  4. LEVOCARNITINE. [Suspect]
     Active Substance: LEVOCARNITINE
     Indication: PARENTERAL NUTRITION
     Dosage: 5 ML PER BAG, FORMULA JACISA029 (WITHOUT VITAMIN K1)
     Route: 065
     Dates: start: 201610
  5. LEVOCARNITINE. [Suspect]
     Active Substance: LEVOCARNITINE
     Dosage: 5 ML PER BAG, FORMULA JACISA029K (WITH VITAMIN K1)
     Dates: start: 201610
  6. SELENIUM [Suspect]
     Active Substance: SELENIUM
     Indication: PARENTERAL NUTRITION
     Dosage: 5 ML PER BAG, FORMULA JACISA029K (WITH VITAMIN K1)
     Route: 065
     Dates: start: 201610
  7. SELENIUM [Suspect]
     Active Substance: SELENIUM
     Dosage: 5 ML PER BAG, FORMULA JACISA029 (WITHOUT VITAMIN K1)
     Route: 065
     Dates: start: 201610
  8. ASCORBIC ACID/PYRIDOXINE HYDROCHLORIDE/BIOTIN/TOCOPHEROL/FOLIC ACID/COLECALCIFEROL/CYANOCOBALAMIN/RE [Suspect]
     Active Substance: VITAMINS
     Indication: PARENTERAL NUTRITION
     Dosage: 5 ML PER BAG, FORMULA JACISA029 (WITHOUT VITAMIN K1)
     Route: 065
     Dates: start: 201610
  9. POTASSIUM CHLORIDE (NOT SPECIFIED) [Suspect]
     Active Substance: POTASSIUM CHLORIDE
     Dosage: KCL 10% 500 ML, 134 ML PER BAG, FORMULA JACISA029 (WITHOUT VITAMIN K1)
     Route: 065
     Dates: start: 201610
  10. SODIUM CHLORIDE (MANUFACTURER UNKNOWN) [Suspect]
     Active Substance: SODIUM CHLORIDE
     Dosage: NACL 20% 500 ML, 110 ML PER BAG, FORMULA JACISA029K (WITH VITAMIN K1)
     Route: 065
     Dates: start: 201610
  11. SODIUM LACTATE. [Suspect]
     Active Substance: SODIUM LACTATE
     Indication: PARENTERAL NUTRITION
     Dosage: 90 ML PER BAG, FORMULA JACISA029 (WITHOUT VITAMIN K1)
     Route: 065
     Dates: start: 201610
  12. ZINC. [Suspect]
     Active Substance: ZINC
     Indication: PARENTERAL NUTRITION
     Dosage: 10 ML PER BAG, FORMULA JACISA029 (WITHOUT VITAMIN K1)
     Dates: start: 201610
  13. GLUCOSE/SODIUM LACTATE/SODIUM CHLORIDE/MAGNESIUM CHLORIDE HEXAHYDRATE/CALCIUM CHLORIDE DIHYDRATE [Suspect]
     Active Substance: CALCIUM CHLORIDE\DEXTROSE\MAGNESIUM CHLORIDE\SODIUM CHLORIDE\SODIUM LACTATE
     Dosage: GLUCOSE CALCIUM 10% 500 ML, 36 ML PER BAG, FORMULA JACISA029K (WITH VITAMIN K1)
     Route: 065
     Dates: start: 201610
  14. GLUCOSE (MANUFACTURER UNKNOWN) [Suspect]
     Active Substance: DEXTROSE
     Indication: PARENTERAL NUTRITION
     Dosage: 700 ML PER BAG, FORMULA JACISA029K (WITH VITAMIN K1)
     Route: 065
     Dates: start: 201610
  15. POTASSIUM CHLORIDE (NOT SPECIFIED) [Suspect]
     Active Substance: POTASSIUM CHLORIDE
     Indication: PARENTERAL NUTRITION
     Dosage: KCL 10% 500 ML, 134 ML PER BAG, FORMULA JACISA029K (WITH VITAMIN K1)
     Route: 065
     Dates: start: 201610
  16. ASCORBIC ACID/PYRIDOXINE HYDROCHLORIDE/BIOTIN/TOCOPHEROL/FOLIC ACID/COLECALCIFEROL/CYANOCOBALAMIN/RE [Suspect]
     Active Substance: VITAMINS
     Dosage: 5 ML PER BAG, FORMULA JACISA029K (WITH VITAMIN K1)
     Route: 065
     Dates: start: 201610
  17. GLUCOSE 1-PHOSPHATE DISODIUM [Suspect]
     Active Substance: .ALPHA.-GLUCOSE-1-PHOSPHATE
     Dosage: 55 ML PER BAG, FORMULA JACISA029 (WITHOUT VITAMIN K1)
     Route: 065
     Dates: start: 201610
  18. SMOFLIPID [Suspect]
     Active Substance: FISH OIL\MEDIUM-CHAIN TRIGLYCERIDES\OLIVE OIL\SOYBEAN OIL
     Indication: PARENTERAL NUTRITION
     Dosage: 150 ML PER BAG, FORMULA JACISA029K (WITH VITAMIN K1)
     Route: 065
     Dates: start: 201610
  19. GLUCOSE (MANUFACTURER UNKNOWN) [Suspect]
     Active Substance: DEXTROSE
     Dosage: 700 ML PER BAG, FORMULA JACISA029 (WITHOUT VITAMIN K1)
     Route: 065
     Dates: start: 201610
  20. SODIUM CHLORIDE (MANUFACTURER UNKNOWN) [Suspect]
     Active Substance: SODIUM CHLORIDE
     Indication: PARENTERAL NUTRITION
     Dosage: NACL 20% 500ML, 110 ML PER BAG, FORMULA JACISA029 (WITHOUT VITAMIN K1)
     Route: 065
     Dates: start: 201610
  21. AMINO ACIDS NOS [Suspect]
     Active Substance: AMINO ACIDS
     Dosage: 560 ML PER BAG, FORMULA JACISA029 (WITHOUT VITAMIN K1)
     Route: 065
     Dates: start: 201610
  22. MAGNESIUM CHLORIDE. [Suspect]
     Active Substance: MAGNESIUM CHLORIDE
     Indication: PARENTERAL NUTRITION
     Dosage: MGCL2 10% 500ML, 27 ML PER BAG, FORMULA JACISA029 (WITHOUT VITAMIN K1)
     Route: 065
     Dates: start: 201610
  23. MAGNESIUM CHLORIDE. [Suspect]
     Active Substance: MAGNESIUM CHLORIDE
     Dosage: MGCL2 10% 500ML, 27 ML PER BAG, FORMULA JACISA029K (WITH VITAMIN K1)
     Dates: start: 201610
  24. ZINC. [Suspect]
     Active Substance: ZINC
     Dosage: 10 ML PER BAG, FORMULA JACISA029K (WITH VITAMIN K1)
     Dates: start: 201610
  25. GLUCOSE 1-PHOSPHATE DISODIUM [Suspect]
     Active Substance: .ALPHA.-GLUCOSE-1-PHOSPHATE
     Indication: PARENTERAL NUTRITION
     Dosage: 55 ML PER BAG, FORMULA JACISA029K (WITH VITAMIN K1)
     Route: 065
     Dates: start: 201610
  26. SODIUM LACTATE. [Suspect]
     Active Substance: SODIUM LACTATE
     Dosage: 90 ML PER BAG, FORMULA JACISA029K (WITH VITAMIN K1)
     Dates: start: 201610
  27. GLUCOSE/SODIUM LACTATE/SODIUM CHLORIDE/MAGNESIUM CHLORIDE HEXAHYDRATE/CALCIUM CHLORIDE DIHYDRATE [Suspect]
     Active Substance: CALCIUM CHLORIDE\DEXTROSE\MAGNESIUM CHLORIDE\SODIUM CHLORIDE\SODIUM LACTATE
     Indication: PARENTERAL NUTRITION
     Dosage: GLUCOSE CALCIUM 10% 500 ML, 36 ML PER BAG, FORMULA JACISA029 (WITHOUT VITAMIN K1)
     Route: 065
     Dates: start: 201610

REACTIONS (3)
  - Food craving [Unknown]
  - Thirst [Unknown]
  - Malaise [Unknown]

NARRATIVE: CASE EVENT DATE: 201807
